FAERS Safety Report 11359495 (Version 11)
Quarter: 2016Q4

REPORT INFORMATION
  Report Type: Report from Study
  Country: US (occurrence: US)
  Receive Date: 20150807
  Receipt Date: 20161021
  Transmission Date: 20170206
  Serious: No
  Sender: FDA-Public Use
  Company Number: PHEH2015US005993

PATIENT
  Age: 13 Year
  Sex: Female

DRUGS (3)
  1. AFINITOR [Suspect]
     Active Substance: EVEROLIMUS
     Indication: GANGLIOGLIOMA
     Dosage: 7.5 MG, QD
     Route: 048
     Dates: start: 20141011
  2. KEPPRA [Concomitant]
     Active Substance: LEVETIRACETAM
     Indication: SEIZURE
     Dosage: 500 MG, BID
     Route: 065
  3. ERYTHROMYCIN. [Concomitant]
     Active Substance: ERYTHROMYCIN
     Indication: PRODUCT USED FOR UNKNOWN INDICATION
     Dosage: UNK
     Route: 065

REACTIONS (27)
  - Tremor [Unknown]
  - Skin depigmentation [Not Recovered/Not Resolved]
  - Nervousness [Not Recovered/Not Resolved]
  - Mouth ulceration [Recovered/Resolved with Sequelae]
  - Sinusitis [Not Recovered/Not Resolved]
  - Urinary incontinence [Unknown]
  - Menstruation delayed [Not Recovered/Not Resolved]
  - Amenorrhoea [Not Recovered/Not Resolved]
  - Stomatitis [Not Recovered/Not Resolved]
  - Pharyngitis streptococcal [Not Recovered/Not Resolved]
  - Urticaria [Unknown]
  - Mean cell volume decreased [Unknown]
  - Stomatitis [Recovered/Resolved]
  - Pharyngitis streptococcal [Recovered/Resolved]
  - Ovarian cyst [Unknown]
  - Red blood cell count increased [Unknown]
  - Blood urea decreased [Unknown]
  - Rash [Unknown]
  - Feeling jittery [Unknown]
  - Eructation [Unknown]
  - Affect lability [Not Recovered/Not Resolved]
  - Panic attack [Recovering/Resolving]
  - Cough [Not Recovered/Not Resolved]
  - Stomatitis [Recovered/Resolved]
  - Oppositional defiant disorder [Not Recovered/Not Resolved]
  - Rash pruritic [Not Recovered/Not Resolved]
  - Sneezing [Not Recovered/Not Resolved]

NARRATIVE: CASE EVENT DATE: 20150326
